FAERS Safety Report 10197038 (Version 1)
Quarter: 2014Q2

REPORT INFORMATION
  Report Type: Spontaneous
  Country: GB (occurrence: GB)
  Receive Date: 20140527
  Receipt Date: 20140527
  Transmission Date: 20141212
  Serious: Yes (Other)
  Sender: FDA-Public Use
  Company Number: GB-ASTRAZENECA-2014SE34690

PATIENT
  Age: 58 Year
  Sex: Female
  Weight: 75.3 kg

DRUGS (15)
  1. NEXIUM [Suspect]
     Indication: DYSPEPSIA
     Route: 048
     Dates: start: 20140507, end: 20140509
  2. NEXIUM [Suspect]
     Indication: MALAISE
     Route: 048
     Dates: start: 20140507, end: 20140509
  3. BUSCOPAN [Concomitant]
  4. CELEBREX [Concomitant]
  5. DHC-CONTINUS [Concomitant]
  6. HYDROXYCHLOROQUINE [Concomitant]
  7. IBANDRONIC ACID [Concomitant]
     Dosage: 150 MG, 1/1MONTHS
  8. MOVICOL [Concomitant]
     Route: 048
  9. OMEPRAZOLE [Concomitant]
  10. ORAMORPH [Concomitant]
  11. PARACETAMOL [Concomitant]
  12. PREDNISOLONE [Concomitant]
  13. SALIVIX [Concomitant]
  14. VISCOTEARS [Concomitant]
     Route: 047
  15. VOLTAROL [Concomitant]

REACTIONS (5)
  - Limb discomfort [Recovering/Resolving]
  - Reaction to colouring [Recovering/Resolving]
  - Fatigue [Recovering/Resolving]
  - Dizziness [Recovering/Resolving]
  - Malaise [Recovering/Resolving]
